FAERS Safety Report 15590207 (Version 1)
Quarter: 2018Q4

REPORT INFORMATION
  Report Type: Spontaneous
  Country: US (occurrence: US)
  Receive Date: 20181106
  Receipt Date: 20181106
  Transmission Date: 20190205
  Serious: No
  Sender: FDA-Public Use
  Company Number: US-ASTRAZENECA-2018SF31907

PATIENT
  Age: 72 Year
  Sex: Female

DRUGS (5)
  1. BYDUREON [Suspect]
     Active Substance: EXENATIDE
     Indication: CARDIAC DISORDER
     Route: 058
     Dates: start: 20181005
  2. VICTOZA [Concomitant]
     Active Substance: LIRAGLUTIDE
  3. BYDUREON [Suspect]
     Active Substance: EXENATIDE
     Indication: WEIGHT DECREASED
     Route: 058
     Dates: start: 20181005
  4. BYDUREON [Suspect]
     Active Substance: EXENATIDE
     Indication: DIABETES MELLITUS
     Route: 058
     Dates: start: 20181005
  5. INSULIN [Concomitant]
     Active Substance: INSULIN NOS
     Dosage: EVERY DAY
     Dates: start: 201510

REACTIONS (1)
  - Blood glucose increased [Unknown]
